FAERS Safety Report 9042412 (Version 1)
Quarter: 2013Q1

REPORT INFORMATION
  Report Type: Report from Study
  Country: US (occurrence: US)
  Receive Date: 20130129
  Receipt Date: 20130129
  Transmission Date: 20140127
  Serious: No
  Sender: FDA-Public Use
  Company Number: US-ABBOTT-12P-163-0908419-00

PATIENT
  Sex: Female
  Weight: 63.11 kg

DRUGS (13)
  1. HUMIRA 40 MG/0.8 ML PEN [Suspect]
     Indication: RHEUMATOID ARTHRITIS
     Dates: start: 20120119
  2. METFORMIN [Concomitant]
     Indication: DIABETES MELLITUS
  3. ONGLYZA [Concomitant]
     Indication: DIABETES MELLITUS
  4. PREDNISONE [Concomitant]
     Indication: RHEUMATOID ARTHRITIS
     Dates: start: 201110
  5. PROCRIT [Concomitant]
     Indication: HAEMOGLOBIN DECREASED
  6. PROCRIT [Concomitant]
     Indication: SPHEROCYTIC ANAEMIA
  7. CALCIUM [Concomitant]
     Indication: MINERAL SUPPLEMENTATION
  8. VITAMIN D [Concomitant]
     Indication: VITAMIN SUPPLEMENTATION
  9. FOLIC ACID [Concomitant]
     Indication: VITAMIN SUPPLEMENTATION
  10. IRON [Concomitant]
     Indication: MINERAL SUPPLEMENTATION
  11. MAGNESIUM [Concomitant]
     Indication: VITAMIN SUPPLEMENTATION
  12. OXYCODONE [Concomitant]
     Indication: PAIN
  13. OMEPRAZOLE [Concomitant]
     Indication: DIVERTICULITIS

REACTIONS (2)
  - Increased appetite [Not Recovered/Not Resolved]
  - Weight increased [Not Recovered/Not Resolved]
